FAERS Safety Report 23829613 (Version 3)
Quarter: 2024Q3

REPORT INFORMATION
  Report Type: Spontaneous
  Country: US (occurrence: US)
  Receive Date: 20240508
  Receipt Date: 20240823
  Transmission Date: 20241016
  Serious: Yes (Other)
  Sender: BRISTOL MYERS SQUIBB
  Company Number: US-BRISTOL-MYERS SQUIBB COMPANY-2024-070353

PATIENT
  Age: 84 Year
  Sex: Male

DRUGS (3)
  1. POMALYST [Suspect]
     Active Substance: POMALIDOMIDE
     Indication: Plasma cell myeloma
     Route: 048
     Dates: start: 202403
  2. POMALYST [Suspect]
     Active Substance: POMALIDOMIDE
     Dosage: 1 TIME A DAY
     Route: 048
  3. POMALYST [Suspect]
     Active Substance: POMALIDOMIDE
     Dosage: 1 TIME A DAY
     Route: 048

REACTIONS (1)
  - Neuropathy peripheral [Not Recovered/Not Resolved]

NARRATIVE: CASE EVENT DATE: 20240301
